FAERS Safety Report 6085292-8 (Version None)
Quarter: 2009Q1

REPORT INFORMATION
  Report Type: 
  Country: None (occurrence: None)
  Receive Date: 20090220
  Receipt Date: 20090218
  Transmission Date: 20090719
  Serious: Yes (Hospitalization)
  Sender: FDA-Public Use
  Company Number: JP-ASTRAZENECA-2009AP01289

PATIENT
  Age: 57 Year
  Sex: Female

DRUGS (2)
  1. ARIMIDEX [Suspect]
     Indication: BREAST CANCER
     Route: 048
  2. HERCEPTIN [Suspect]
     Indication: BREAST CANCER
     Dosage: DOSE UNKNOWN
     Route: 042

REACTIONS (1)
  - ATRIOVENTRICULAR BLOCK [None]
